FAERS Safety Report 5316554-7 (Version None)
Quarter: 2007Q2

REPORT INFORMATION
  Report Type: 
  Country: None (occurrence: None)
  Receive Date: 20070504
  Receipt Date: 20070426
  Transmission Date: 20071010
  Serious: Yes (Hospitalization, Other)
  Sender: FDA-Public Use
  Company Number: US-JNJFOC-20070406450

PATIENT
  Sex: Male

DRUGS (11)
  1. FENTANYL TRANSDERMAL SYSTEM [Suspect]
     Indication: BACK PAIN
     Route: 062
  2. FENTANYL TRANSDERMAL SYSTEM [Suspect]
     Indication: BACK PAIN
     Route: 062
  3. ACTIQ [Concomitant]
     Indication: PAIN
     Route: 048
  4. VERAPAMIL [Concomitant]
     Indication: HYPERTENSION
     Route: 048
  5. VYTORIN [Concomitant]
     Indication: BLOOD CHOLESTEROL INCREASED
     Route: 048
  6. DETROL [Concomitant]
     Indication: BLADDER DISORDER
     Route: 048
  7. CYMBALTA [Concomitant]
     Indication: DEPRESSION
     Route: 048
  8. LEXAPRO [Concomitant]
     Indication: DEPRESSION
     Route: 048
  9. KLONAPIN [Concomitant]
     Indication: ANXIETY
     Route: 048
  10. LASIX [Concomitant]
     Indication: SWELLING
     Route: 048
  11. POTASSIUM CHLORIDE [Concomitant]
     Indication: HYPOKALAEMIA
     Route: 048

REACTIONS (10)
  - APPLICATION SITE PRURITUS [None]
  - DIZZINESS [None]
  - GALLBLADDER DISORDER [None]
  - HYPERHIDROSIS [None]
  - INSOMNIA [None]
  - LOSS OF CONSCIOUSNESS [None]
  - PYREXIA [None]
  - SUICIDAL IDEATION [None]
  - THINKING ABNORMAL [None]
  - UNDERWEIGHT [None]
